FAERS Safety Report 21831279 (Version 2)
Quarter: 2024Q2

REPORT INFORMATION
  Report Type: Spontaneous
  Country: US (occurrence: US)
  Receive Date: 20230106
  Receipt Date: 20240401
  Transmission Date: 20240716
  Serious: Yes (Other)
  Sender: FDA-Public Use
  Company Number: US-PFIZER INC-202300003679

PATIENT
  Age: 66 Year
  Sex: Female
  Weight: 95.25 kg

DRUGS (15)
  1. IBRANCE [Suspect]
     Active Substance: PALBOCICLIB
     Indication: Breast cancer metastatic
     Dosage: 125 MG, CYCLIC (TABLET FOR THREE WEEKS ON AND ONE WEEK OFF)
     Route: 048
     Dates: start: 202206
  2. IBRANCE [Suspect]
     Active Substance: PALBOCICLIB
     Indication: Metastases to bone
     Dosage: 75 MG, 1X/DAY
     Dates: start: 202208
  3. IBRANCE [Suspect]
     Active Substance: PALBOCICLIB
     Dosage: 75 MG, CYCLIC (TABLET THREE WEEKS ON AND ONE WEEK OFF)
     Dates: start: 202209
  4. IBRANCE [Suspect]
     Active Substance: PALBOCICLIB
     Dosage: 75 MG, CYCLIC (TABLET TWO WEEKS ON AND TWO WEEKS OFF)
  5. FASLODEX [Suspect]
     Active Substance: FULVESTRANT
     Indication: Breast cancer metastatic
     Dosage: 250 MG IN EACH BUTTOCK (DAY 1, DAY 15 AND DAY 29), THEN ONCE A MONTH
     Dates: start: 20221025
  6. FASLODEX [Suspect]
     Active Substance: FULVESTRANT
     Indication: Antioestrogen therapy
     Dosage: UNK (SHOTS, 2 SHOTS EVERY MONTH)
  7. FULVESTRANT [Suspect]
     Active Substance: FULVESTRANT
     Dosage: UNK
  8. ASPIRIN [Concomitant]
     Active Substance: ASPIRIN
     Indication: Coronary artery disease
     Dosage: 81 MG, DAILY (LOW DOSE ASPIRIN EVERY DAY)
     Route: 048
     Dates: start: 20240301
  9. CALCIUM [Concomitant]
     Active Substance: CALCIUM
     Dosage: UNK
     Route: 048
  10. LETROZOLE [Concomitant]
     Active Substance: LETROZOLE
     Dosage: UNK
     Dates: end: 202210
  11. MELOXICAM [Concomitant]
     Active Substance: MELOXICAM
     Indication: Rotator cuff syndrome
     Dosage: 7.5 MG, 1X/DAY (TABLET ONCE A DAY)
     Route: 048
     Dates: start: 20240207
  12. MELOXICAM [Concomitant]
     Active Substance: MELOXICAM
     Dosage: 7.5 MG, AS NEEDED (TABLET AS NEEDED)
     Route: 048
  13. TYLENOL [Concomitant]
     Active Substance: ACETAMINOPHEN
     Dosage: UNK
  14. VITAMIN B12 [Concomitant]
     Active Substance: CYANOCOBALAMIN
     Dosage: UNK
     Route: 048
  15. VITAMIN D NOS [Concomitant]
     Active Substance: VITAMIN D NOS
     Dosage: UNK
     Route: 048

REACTIONS (4)
  - Neutropenia [Unknown]
  - Fatigue [Unknown]
  - Weight increased [Unknown]
  - Burning sensation [Not Recovered/Not Resolved]
